FAERS Safety Report 24777148 (Version 1)
Quarter: 2024Q4

REPORT INFORMATION
  Report Type: Spontaneous
  Country: US (occurrence: US)
  Receive Date: 20241226
  Receipt Date: 20241226
  Transmission Date: 20250114
  Serious: Yes (Other)
  Sender: AMGEN
  Company Number: US-AMGEN-USASP2024250728

PATIENT

DRUGS (4)
  1. PEGFILGRASTIM [Suspect]
     Active Substance: PEGFILGRASTIM
     Indication: Prophylaxis
     Route: 065
  2. CARBOPLATIN [Concomitant]
     Active Substance: CARBOPLATIN
     Indication: Neoplasm
     Dosage: UNK UNK, Q3WK
  3. PACLITAXEL [Concomitant]
     Active Substance: PACLITAXEL
     Indication: Neoplasm
     Dosage: 175MG/M2, Q3WK
     Route: 065
  4. BUPARLISIB [Concomitant]
     Active Substance: BUPARLISIB
     Dosage: DOSE ESCALATION OF 50, 80 OR 100 MG/DAY
     Route: 065

REACTIONS (6)
  - Thrombocytopenia [Unknown]
  - Fatigue [Unknown]
  - Hyperglycaemia [Unknown]
  - Alopecia [Unknown]
  - Arthralgia [Unknown]
  - Blood alkaline phosphatase increased [Unknown]
